FAERS Safety Report 7694467-3 (Version None)
Quarter: 2011Q3

REPORT INFORMATION
  Report Type: 
  Country: None (occurrence: None)
  Receive Date: 20110819
  Receipt Date: 20110810
  Transmission Date: 20111222
  Serious: Yes (Hospitalization)
  Sender: FDA-Public Use
  Company Number: PHEH2011US01252

PATIENT
  Age: 74 Year
  Sex: Female

DRUGS (1)
  1. TOBI [Suspect]
     Dosage: 300 MG, 28 DAYS ON AND 28 DAYS OFF
     Dates: start: 20110128

REACTIONS (1)
  - UPPER RESPIRATORY TRACT INFECTION [None]
